FAERS Safety Report 9628048 (Version 1)
Quarter: 2013Q4

REPORT INFORMATION
  Report Type: Spontaneous
  Country: US (occurrence: US)
  Receive Date: 20131016
  Receipt Date: 20131016
  Transmission Date: 20140711
  Serious: No
  Sender: FDA-Public Use
  Company Number: US-009507513-1310USA005794

PATIENT
  Sex: Female

DRUGS (1)
  1. IMPLANON [Suspect]
     Dosage: UNK
     Dates: start: 2008

REACTIONS (6)
  - Abscess limb [Not Recovered/Not Resolved]
  - Implant site fibrosis [Unknown]
  - Pain in extremity [Not Recovered/Not Resolved]
  - Neuropathy peripheral [Not Recovered/Not Resolved]
  - Medical device complication [Unknown]
  - Incorrect drug administration duration [Unknown]
